FAERS Safety Report 8374034-9 (Version None)
Quarter: 2012Q2

REPORT INFORMATION
  Report Type: 
  Country: None (occurrence: None)
  Receive Date: 20120521
  Receipt Date: 20120515
  Transmission Date: 20120825
  Serious: No
  Sender: FDA-Public Use
  Company Number: US-PFIZER INC-2012118653

PATIENT
  Sex: Male

DRUGS (4)
  1. NIASPAN [Concomitant]
     Dosage: UNK
  2. ASPIRIN [Suspect]
     Indication: MYOCARDIAL INFARCTION
     Dosage: UNK
  3. CELEBREX [Suspect]
     Dosage: UNK
     Route: 048
  4. CELEBREX [Suspect]
     Dosage: 200 MG, UNK
     Route: 048

REACTIONS (2)
  - DRUG ADMINISTRATION ERROR [None]
  - ABDOMINAL DISCOMFORT [None]
